FAERS Safety Report 6000209-X (Version None)
Quarter: 2008Q4

REPORT INFORMATION
  Report Type: 
  Country: None (occurrence: None)
  Receive Date: 20081211
  Receipt Date: 20081211
  Transmission Date: 20090506
  Serious: Yes (Hospitalization)
  Sender: FDA-Public Use
  Company Number: None

PATIENT
  Sex: Male

DRUGS (5)
  1. RANIBIZUMAB (1.0 MG/0.1CC, GENENTECH) [Suspect]
     Indication: DIABETIC RETINOPATHY
     Dosage: 0.5 MG, MONTHLY, INTRAVIT
  2. RANIBIZUMAB [Suspect]
     Indication: DIABETIC RETINOPATHY
     Dosage: 0.5 MG INTRAVITREAL
     Dates: start: 20080303
  3. RANIBIZUMAB [Suspect]
     Indication: DIABETIC RETINOPATHY
     Dosage: 0.5 MG INTRAVITREAL
     Dates: start: 20080404
  4. RANIBIZUMAB [Suspect]
     Indication: DIABETIC RETINOPATHY
     Dosage: 0.5 MG INTRAVITREAL
     Dates: start: 20080425
  5. RANIBIZUMAB [Suspect]
     Indication: DIABETIC RETINOPATHY
     Dosage: 0.5 MG, INTRAVITREAL
     Dates: start: 20080807

REACTIONS (2)
  - CARDIAC FAILURE CONGESTIVE [None]
  - MYOCARDIAL INFARCTION [None]
